FAERS Safety Report 12780587 (Version 1)
Quarter: 2016Q3

REPORT INFORMATION
  Report Type: Spontaneous
  Country: US (occurrence: US)
  Receive Date: 20160926
  Receipt Date: 20160926
  Transmission Date: 20161109
  Serious: Yes (Other)
  Sender: FDA-Public Use
  Company Number: US-PFIZER INC-2016444611

PATIENT
  Age: 72 Year
  Sex: Female
  Weight: 79 kg

DRUGS (2)
  1. FLUOXETINE [Concomitant]
     Active Substance: FLUOXETINE HYDROCHLORIDE
     Indication: ANXIETY
     Dosage: 60 MG (20MG; THREE PILLS AT LUNCH), 1X/DAY
  2. LYRICA [Suspect]
     Active Substance: PREGABALIN
     Indication: DIABETIC NEUROPATHY
     Dosage: 25 MG, 2X/DAY, IN THE MORNING AND AT DINNER TIME
     Route: 048
     Dates: start: 20160731

REACTIONS (29)
  - Dizziness [Not Recovered/Not Resolved]
  - Heart rate increased [Unknown]
  - Dyspnoea [Unknown]
  - Fall [Unknown]
  - Presyncope [Unknown]
  - Chest discomfort [Unknown]
  - Condition aggravated [Recovered/Resolved]
  - Peripheral swelling [Not Recovered/Not Resolved]
  - Blood pressure increased [Unknown]
  - Anxiety [Unknown]
  - Asthenia [Not Recovered/Not Resolved]
  - Somnolence [Not Recovered/Not Resolved]
  - Condition aggravated [Not Recovered/Not Resolved]
  - Skin discolouration [Unknown]
  - Onychomadesis [Unknown]
  - Memory impairment [Unknown]
  - Muscle strain [Unknown]
  - Contusion [Unknown]
  - Foot fracture [Unknown]
  - Weight increased [Unknown]
  - Condition aggravated [Unknown]
  - Panic attack [Unknown]
  - Head injury [Unknown]
  - Agitation [Not Recovered/Not Resolved]
  - Electrocardiogram abnormal [Unknown]
  - Eyelid ptosis [Recovered/Resolved]
  - Vision blurred [Unknown]
  - Hypoaesthesia [Not Recovered/Not Resolved]
  - Chest pain [Recovered/Resolved]

NARRATIVE: CASE EVENT DATE: 201608
